FAERS Safety Report 23296364 (Version 1)
Quarter: 2023Q4

REPORT INFORMATION
  Report Type: Spontaneous
  Country: BR (occurrence: BR)
  Receive Date: 20231214
  Receipt Date: 20231214
  Transmission Date: 20240109
  Serious: Yes (Other)
  Sender: FDA-Public Use
  Company Number: BR-TAKEDA-2023TUS118347

PATIENT
  Age: 78 Year
  Sex: Male

DRUGS (2)
  1. PANTOPRAZOLE [Suspect]
     Active Substance: PANTOPRAZOLE
     Dosage: UNK
     Route: 065
  2. DEXILANT [Suspect]
     Active Substance: DEXLANSOPRAZOLE
     Indication: Gastrooesophageal reflux disease
     Dosage: 30 MILLIGRAM, QD
     Route: 065

REACTIONS (11)
  - Dysentery [Unknown]
  - Drug ineffective [Unknown]
  - Gastrointestinal pain [Unknown]
  - Throat clearing [Unknown]
  - Salivary hypersecretion [Unknown]
  - Cardiac disorder [Unknown]
  - Arterial occlusive disease [Unknown]
  - Rhinitis [Unknown]
  - Sensation of foreign body [Unknown]
  - Abdominal pain [Unknown]
  - Diarrhoea [Unknown]
